FAERS Safety Report 4399574-9 (Version None)
Quarter: 2004Q3

REPORT INFORMATION
  Report Type: 
  Country: None (occurrence: None)
  Receive Date: 20040712
  Receipt Date: 20040624
  Transmission Date: 20050211
  Serious: Yes (Hospitalization)
  Sender: FDA-Public Use
  Company Number: F01200401591

PATIENT
  Age: 62 Year
  Sex: Female

DRUGS (5)
  1. (OXALIPLATIN) - SOLUTION - 130 MG/M2 [Suspect]
     Indication: COLON CANCER METASTATIC
     Dosage: 130 MG/M2, Q3W
     Route: 042
     Dates: start: 20040523, end: 20040523
  2. (CAPECITABINE) - TABLET - 1000 MG/M2 [Suspect]
     Dosage: 1000 MG/M2 TWICE DAILY FROM D1 TO D14
     Route: 048
     Dates: start: 20040523
  3. (BEVACIZUMAB) - SOLUTION - 1 UNITS [Suspect]
     Dosage: 1 UNIT Q3W
     Route: 042
     Dates: start: 20040523, end: 20040523
  4. SLOW FE (FERROUS SULFATE) [Concomitant]
  5. RANITIDINE [Concomitant]

REACTIONS (3)
  - ASTHENIA [None]
  - GENERAL PHYSICAL HEALTH DETERIORATION [None]
  - METASTASIS [None]
